FAERS Safety Report 9059752 (Version 1)
Quarter: 2013Q1

REPORT INFORMATION
  Report Type: Spontaneous
  Country: GB (occurrence: GB)
  Receive Date: 20130211
  Receipt Date: 20130211
  Transmission Date: 20140127
  Serious: Yes (Life-Threatening)
  Sender: FDA-Public Use
  Company Number: GB-MERCK-1302GBR003399

PATIENT
  Age: 65 Year
  Sex: Male
  Weight: 104 kg

DRUGS (7)
  1. JANUVIA [Suspect]
     Dosage: 100 MG, UNK
     Route: 048
     Dates: start: 20120621, end: 20120716
  2. AMLODIPINE [Concomitant]
  3. BISOPROLOL [Concomitant]
  4. GLICLAZIDE [Concomitant]
  5. LISINOPRIL [Concomitant]
  6. METFORMIN [Concomitant]
  7. STATIN (UNSPECIFIED) [Concomitant]

REACTIONS (8)
  - Pancreatic carcinoma [Unknown]
  - Abdominal pain [Unknown]
  - Liver function test abnormal [Unknown]
  - Jaundice cholestatic [Unknown]
  - Pancreatic mass [Unknown]
  - Urine analysis abnormal [Unknown]
  - Weight decreased [Unknown]
  - Yellow skin [Unknown]
